FAERS Safety Report 9814737 (Version 2)
Quarter: 2014Q1

REPORT INFORMATION
  Report Type: Spontaneous
  Country: US (occurrence: US)
  Receive Date: 20140113
  Receipt Date: 20140113
  Transmission Date: 20141002
  Serious: Yes (Other)
  Sender: FDA-Public Use
  Company Number: US-SANOFI-AVENTIS-2013SA050736

PATIENT
  Age: 66 Year
  Sex: Male
  Weight: 90.71 kg

DRUGS (26)
  1. TAXOTERE [Suspect]
     Indication: PROSTATE CANCER
     Dates: start: 201203, end: 201208
  2. LUPRON [Suspect]
     Indication: PROSTATE CANCER
     Dosage: DOSE AND FREQUENCY- 225, 4 TIMEA A YEAR
     Dates: start: 200903, end: 201103
  3. ENZALUTAMIDE [Suspect]
     Dates: start: 201303
  4. ALLOPURINOL [Concomitant]
     Dates: start: 201303
  5. PRAVASTATIN [Concomitant]
     Dates: start: 201303
  6. ASPIRIN [Concomitant]
     Dates: start: 201303
  7. ATENOLOL [Concomitant]
     Dates: start: 201303
  8. AMBIEN [Concomitant]
     Dates: start: 201303
  9. SINGULAIR [Concomitant]
     Dates: start: 201303
  10. COMBIVENT /JOR/ [Concomitant]
     Dates: start: 201303
  11. PROVENTIL [Concomitant]
     Dosage: DOSE: 1-2 PUFFS EVERY 4-6 HOURS AS NEEDED
     Dates: start: 201303
  12. MULTIVITAMINS [Concomitant]
     Dates: start: 201303
  13. CALCIUM/VITAMIN D [Concomitant]
     Dates: start: 201303
  14. FISH OIL [Concomitant]
     Dates: start: 201303
  15. GARLIC [Concomitant]
     Dates: start: 201303
  16. COENZA Q [Concomitant]
     Dates: start: 201303
  17. FUROSEMIDE [Concomitant]
     Dates: start: 201303
  18. BISPHOSPHONATES [Concomitant]
     Dates: start: 201303
  19. PRILOSEC [Concomitant]
     Dates: start: 201303
  20. VITAMIN B COMPLEX [Concomitant]
     Dates: start: 201303
  21. ALPHA LIPOIC ACID [Concomitant]
     Dates: start: 201303
  22. PRINIVIL [Concomitant]
     Dates: start: 201303
  23. ENZALUTAMIDE [Concomitant]
  24. HYDROCODONE [Concomitant]
     Indication: PAIN
     Dosage: DOSE: 5/325?FREQUENCY: 1-2 TABLETS EVERY 4-6 HRS
     Dates: start: 201303
  25. ONDANSETRON [Concomitant]
     Indication: NAUSEA
     Dosage: FREQUENCY :1 TABLET UNDER THE TONGUE EVERY 4 HRS
     Dates: start: 201303
  26. FENTANYL [Concomitant]
     Dosage: FREQUENCY- 1 EVERY 72 HOURS
     Route: 062
     Dates: start: 201303

REACTIONS (4)
  - Metastases to bone [Unknown]
  - Neuropathy peripheral [Not Recovered/Not Resolved]
  - Drug ineffective [Unknown]
  - Prostatic specific antigen increased [Unknown]
